FAERS Safety Report 14326821 (Version 1)
Quarter: 2017Q4

REPORT INFORMATION
  Report Type: Spontaneous
  Country: US (occurrence: US)
  Receive Date: 20171227
  Receipt Date: 20171227
  Transmission Date: 20180321
  Serious: Yes (Other)
  Sender: FDA-Public Use
  Company Number: US-BTG INTERNATIONAL LTD-2017BTG01466

PATIENT
  Age: 54 Year
  Sex: Male

DRUGS (3)
  1. CROFAB [Suspect]
     Active Substance: CROTALIDAE POLYVALENT IMMUNE FAB (OVINE)
     Indication: SNAKE BITE
     Dosage: 4 VIALS, SINGLE
     Route: 065
  2. ATROPINE SULATE [Concomitant]
     Active Substance: ATROPINE SULFATE
     Indication: SNAKE BITE
  3. FENOFIBRATE. [Concomitant]
     Active Substance: FENOFIBRATE
     Indication: PRODUCT USED FOR UNKNOWN INDICATION
     Dosage: 4 VIALS, UNK
     Route: 065
     Dates: start: 201512

REACTIONS (3)
  - Bradycardia [Unknown]
  - Hyperhidrosis [Unknown]
  - Nausea [Unknown]
